FAERS Safety Report 19141510 (Version 1)
Quarter: 2021Q2

REPORT INFORMATION
  Report Type: Spontaneous
  Country: US (occurrence: US)
  Receive Date: 20210415
  Receipt Date: 20210415
  Transmission Date: 20210717
  Serious: Yes (Death)
  Sender: FDA-Public Use
  Company Number: US-DECIPHERA PHARMACEUTICALS LLC-2021US000304

PATIENT
  Age: 78 Year
  Sex: Female

DRUGS (2)
  1. QINLOCK [Suspect]
     Active Substance: RIPRETINIB
     Indication: MALIGNANT PERITONEAL NEOPLASM
  2. QINLOCK [Suspect]
     Active Substance: RIPRETINIB
     Indication: RETROPERITONEAL CANCER
     Dosage: 150 MILLIGRAM, QD
     Route: 048
     Dates: start: 20201017, end: 20210306

REACTIONS (1)
  - Death [Fatal]

NARRATIVE: CASE EVENT DATE: 20210306
